FAERS Safety Report 9419644 (Version 1)
Quarter: 2013Q3

REPORT INFORMATION
  Report Type: Spontaneous
  Country: US (occurrence: None)
  Receive Date: 20130723
  Receipt Date: 20130723
  Transmission Date: 20140515
  Serious: Yes (Other)
  Sender: FDA-Public Use
  Company Number: US-DEXPHARM-20130429

PATIENT
  Age: 41 Year
  Sex: Female

DRUGS (1)
  1. OMEPRAZOLE DELAYED RELEASE [Suspect]
     Indication: DYSPEPSIA
     Route: 048
     Dates: start: 20130627, end: 20130628

REACTIONS (5)
  - Throat tightness [None]
  - Dyspnoea [None]
  - Dysarthria [None]
  - Swollen tongue [None]
  - Drug hypersensitivity [None]
